FAERS Safety Report 9583086 (Version 1)
Quarter: 2013Q4

REPORT INFORMATION
  Report Type: Spontaneous
  Country: US (occurrence: US)
  Receive Date: 20131002
  Receipt Date: 20131002
  Transmission Date: 20140711
  Serious: No
  Sender: FDA-Public Use
  Company Number: US-AMGEN-USASP2013044751

PATIENT
  Age: 55 Year
  Sex: Female
  Weight: 81.63 kg

DRUGS (13)
  1. ENBREL [Suspect]
     Indication: RHEUMATOID ARTHRITIS
     Dosage: UNK
     Route: 065
  2. AMBIEN [Concomitant]
     Dosage: UNK
  3. CELEXA                             /00582602/ [Concomitant]
     Dosage: UNK
  4. EVOXAC [Concomitant]
     Dosage: UNK
  5. LYRICA [Concomitant]
     Dosage: UNK
  6. METHOTREXATE [Concomitant]
     Dosage: UNK
  7. MSM [Concomitant]
     Dosage: UNK
  8. GLUCOSAMINE [Concomitant]
     Dosage: UNK
  9. VITAMIN D                          /00107901/ [Concomitant]
     Dosage: UNK
  10. TRIFEREXX [Concomitant]
     Dosage: UNK
  11. PLAQUENIL                          /00072602/ [Concomitant]
     Dosage: UNK
  12. PERCOCET                           /00446701/ [Concomitant]
     Dosage: UNK
  13. NEXIUM                             /01479302/ [Concomitant]
     Dosage: UNK

REACTIONS (1)
  - Joint swelling [Unknown]
